FAERS Safety Report 5254616-3 (Version None)
Quarter: 2007Q1

REPORT INFORMATION
  Report Type: 
  Country: None (occurrence: None)
  Receive Date: 20070302
  Receipt Date: 20070220
  Transmission Date: 20070707
  Serious: Yes (Other)
  Sender: FDA-Public Use
  Company Number: US-PFIZER INC-2007014180

PATIENT
  Sex: Female

DRUGS (2)
  1. DILANTIN [Suspect]
  2. PHENYTOIN [Suspect]
     Dates: start: 20060201, end: 20060501

REACTIONS (3)
  - CONVULSION [None]
  - HEPATOTOXICITY [None]
  - RESORPTION BONE INCREASED [None]
